FAERS Safety Report 5191530-6 (Version None)
Quarter: 2006Q4

REPORT INFORMATION
  Report Type: 
  Country: None (occurrence: None)
  Receive Date: 20061219
  Receipt Date: 20061219
  Transmission Date: 20070319
  Serious: No
  Sender: FDA-Public Use
  Company Number: None

PATIENT
  Age: 58 Year
  Sex: Female

DRUGS (7)
  1. ACTIMMUNE [Suspect]
     Indication: NEOPLASM MALIGNANT
     Dosage: USE 1 INJECTION (0.5 ML) FOUR TIMES A WEEK
  2. TARGRETIN CAPS [Concomitant]
  3. VALTREX [Concomitant]
  4. ZOCOR [Concomitant]
  5. HYDROXYZINE HCL [Concomitant]
  6. PAROXETINE HCL [Concomitant]
  7. L-THYROXINE (SYNTHROID) [Concomitant]

REACTIONS (3)
  - ARTHRALGIA [None]
  - INFLUENZA LIKE ILLNESS [None]
  - PHARMACEUTICAL PRODUCT COMPLAINT [None]
